FAERS Safety Report 21782886 (Version 4)
Quarter: 2024Q3

REPORT INFORMATION
  Report Type: Spontaneous
  Country: US (occurrence: US)
  Receive Date: 20221227
  Receipt Date: 20240711
  Transmission Date: 20241017
  Serious: Yes (Hospitalization, Other)
  Sender: PIERRE FABRE MEDICAMENT
  Company Number: US-PFM-2022-07768

PATIENT
  Sex: Female
  Weight: 6.259 kg

DRUGS (2)
  1. HEMANGEOL [Suspect]
     Active Substance: PROPRANOLOL HYDROCHLORIDE
     Indication: Haemangioma
     Dosage: 1.2 ML, BID (2/DAY)
     Route: 048
  2. HEMANGEOL [Suspect]
     Active Substance: PROPRANOLOL HYDROCHLORIDE
     Dosage: 1.8 ML, BID (2/DAY)
     Route: 048

REACTIONS (6)
  - Pyelonephritis [Unknown]
  - Pyrexia [Unknown]
  - Frequent bowel movements [Unknown]
  - Respiratory syncytial virus infection [Unknown]
  - Diarrhoea [Unknown]
  - Maternal exposure during breast feeding [Unknown]
